FAERS Safety Report 16653370 (Version 1)
Quarter: 2019Q3

REPORT INFORMATION
  Report Type: Report from Study
  Country: NL (occurrence: NL)
  Receive Date: 20190731
  Receipt Date: 20190731
  Transmission Date: 20191004
  Serious: Yes (Hospitalization)
  Sender: FDA-Public Use
  Company Number: NL-ASTRAZENECA-2019SE41314

PATIENT
  Age: 174 Day
  Weight: 5.1 kg

DRUGS (1)
  1. SYNAGIS [Suspect]
     Active Substance: PALIVIZUMAB
     Indication: ANTIVIRAL PROPHYLAXIS
     Dosage: 13-DEC-2018-58 MG MONTHLY, 10-JAN-2019-73 MG MONTHLY, 07-FEB-2019-81 MG MONTHLY,
     Route: 030
     Dates: start: 20181115, end: 20181115

REACTIONS (2)
  - Respiratory tract infection [Recovered/Resolved]
  - Bronchiolitis [Unknown]

NARRATIVE: CASE EVENT DATE: 20190205
